FAERS Safety Report 5146196-8 (Version None)
Quarter: 2006Q4

REPORT INFORMATION
  Report Type: 
  Country: None (occurrence: None)
  Receive Date: 20061106
  Receipt Date: 20061106
  Transmission Date: 20070319
  Serious: Yes (Life-Threatening)
  Sender: FDA-Public Use
  Company Number: None

PATIENT
  Age: 34 Year
  Sex: Male
  Weight: 79.3795 kg

DRUGS (2)
  1. OXYCONTIN [Suspect]
     Indication: INTERVERTEBRAL DISC PROTRUSION
     Dates: start: 20040801, end: 20061103
  2. OXYCONTIN [Suspect]
     Indication: SPINAL FUSION SURGERY
     Dates: start: 20040801, end: 20061103

REACTIONS (5)
  - DRUG ABUSER [None]
  - DRUG DEPENDENCE [None]
  - FAMILY STRESS [None]
  - MARITAL PROBLEM [None]
  - SUICIDAL IDEATION [None]
